FAERS Safety Report 9853216 (Version 2)
Quarter: 2014Q1

REPORT INFORMATION
  Report Type: Spontaneous
  Country: US (occurrence: US)
  Receive Date: 20140129
  Receipt Date: 20140217
  Transmission Date: 20141002
  Serious: Yes (Hospitalization)
  Sender: FDA-Public Use
  Company Number: ALCN2014US000866

PATIENT
  Age: 83 Year
  Sex: Male
  Weight: 71.2 kg

DRUGS (2)
  1. VIGAMOX [Suspect]
     Indication: PREOPERATIVE CARE
     Dosage: 1 GTT, BID
     Route: 047
     Dates: start: 20140126
  2. L THYROXINE [Concomitant]
     Indication: HYPOTHYROIDISM
     Dosage: 1 DF, QD
     Dates: start: 2011

REACTIONS (2)
  - Dehydration [Recovering/Resolving]
  - Dizziness [Recovering/Resolving]
